FAERS Safety Report 9343982 (Version 1)
Quarter: 2013Q2

REPORT INFORMATION
  Report Type: Spontaneous
  Country: GR (occurrence: GR)
  Receive Date: 20130612
  Receipt Date: 20130612
  Transmission Date: 20140414
  Serious: Yes (Other)
  Sender: FDA-Public Use
  Company Number: PHHY2013GR058659

PATIENT
  Sex: Male

DRUGS (2)
  1. IMATINIB [Suspect]
     Indication: CHRONIC MYELOID LEUKAEMIA
     Dosage: 400 MG, UNK
  2. ANESTHETICS [Suspect]

REACTIONS (3)
  - Prostate cancer [Unknown]
  - Second primary malignancy [Unknown]
  - Drug interaction [Unknown]
